FAERS Safety Report 8942690 (Version 1)
Quarter: 2012Q4

REPORT INFORMATION
  Report Type: 
  Country: GB (occurrence: GB)
  Receive Date: 20121204
  Receipt Date: 20121204
  Transmission Date: 20130627
  Serious: Yes (Hospitalization)
  Sender: FDA-Public Use
  Company Number: GB-PFIZER INC-2012297303

PATIENT
  Age: 58 Year
  Sex: Male

DRUGS (11)
  1. THIAMIN [Concomitant]
     Indication: VOMITING
     Dosage: 100 mg
     Route: 048
  2. DALIVIT [Concomitant]
     Indication: VOMITING
     Dosage: 0.6 ml, 1x/day
     Route: 048
  3. MOVICARD [Concomitant]
     Indication: STOMACH CANCER
     Dosage: UNK
     Route: 048
  4. EPIRUBICIN HCL [Suspect]
  5. OXALIPLATIN [Suspect]
  6. CLOZARIL [Suspect]
     Indication: SCHIZOPHRENIA
     Dosage: UNK
     Route: 048
     Dates: start: 20010701, end: 20120718
  7. CLOZARIL [Suspect]
     Route: 048
     Dates: start: 20120721
  8. CLOZARIL [Suspect]
     Dosage: 150 mg, daily
     Route: 048
  9. CAPECITABINE [Suspect]
  10. HALOPERIDOL [Concomitant]
     Indication: SCHIZOPHRENIA
     Dosage: 5 mg, daily
     Route: 048
  11. PROCYCLIDINE [Concomitant]
     Indication: EXTRAPYRAMIDAL SYMPTOMS
     Dosage: 10 mg, UNK
     Route: 048

REACTIONS (11)
  - Second primary malignancy [Not Recovered/Not Resolved]
  - Adenocarcinoma gastric [Not Recovered/Not Resolved]
  - Vomiting [Recovered/Resolved with Sequelae]
  - Diarrhoea [Recovered/Resolved with Sequelae]
  - Obstruction gastric [Recovered/Resolved with Sequelae]
  - Malaise [Unknown]
  - Weight decreased [Recovered/Resolved with Sequelae]
  - Differential white blood cell count abnormal [Unknown]
  - Platelet count decreased [Unknown]
  - Neutrophil count decreased [Unknown]
  - White blood cell count increased [Unknown]
